FAERS Safety Report 5100040-3 (Version None)
Quarter: 2006Q3

REPORT INFORMATION
  Report Type: 
  Country: None (occurrence: None)
  Receive Date: 20060908
  Receipt Date: 20060828
  Transmission Date: 20061208
  Serious: Yes (Other)
  Sender: FDA-Public Use
  Company Number: PHRM2006FR02415

PATIENT
  Age: 73 Year
  Sex: Female

DRUGS (1)
  1. GLEEVEC [Suspect]
     Indication: GASTROINTESTINAL STROMAL TUMOUR
     Dosage: 200 MG, BID
     Route: 048
     Dates: start: 20060201

REACTIONS (7)
  - ALOPECIA [None]
  - EYELID OEDEMA [None]
  - LACRIMATION INCREASED [None]
  - MUSCLE SPASMS [None]
  - SCAB [None]
  - SQUAMOUS CELL CARCINOMA [None]
  - SURGERY [None]
